FAERS Safety Report 6546551-5 (Version None)
Quarter: 2010Q1

REPORT INFORMATION
  Report Type: 
  Country: None (occurrence: None)
  Receive Date: 20100122
  Receipt Date: 20100114
  Transmission Date: 20100710
  Serious: Yes (Hospitalization, Other)
  Sender: FDA-Public Use
  Company Number: IT-ROXANE LABORATORIES, INC.-2010-RO-00032RO

PATIENT
  Age: 59 Year
  Sex: Male

DRUGS (6)
  1. METHOTREXATE [Suspect]
     Indication: SPONDYLITIS
     Route: 030
  2. METHOTREXATE [Suspect]
  3. METHOTREXATE [Suspect]
     Route: 048
  4. PREDNISONE [Suspect]
     Indication: SPONDYLITIS
  5. CYCLOSPORINE [Suspect]
     Indication: SPONDYLITIS
  6. SALAZOPYRIN [Suspect]
     Indication: SPONDYLITIS
     Dosage: 1000 MG

REACTIONS (5)
  - ALBUMIN CSF INCREASED [None]
  - BLOOD CHOLESTEROL INCREASED [None]
  - BLOOD HOMOCYSTEINE INCREASED [None]
  - CSF PROTEIN INCREASED [None]
  - REVERSIBLE POSTERIOR LEUKOENCEPHALOPATHY SYNDROME [None]
